FAERS Safety Report 9271732 (Version 1)
Quarter: 2013Q2

REPORT INFORMATION
  Report Type: Spontaneous
  Country: None (occurrence: US)
  Receive Date: 20130506
  Receipt Date: 20130506
  Transmission Date: 20140414
  Serious: No
  Sender: FDA-Public Use
  Company Number: US-COVIDIEN/TYCO HEALTHCARE/MALLINCKRODT-T201202952

PATIENT
  Age: 55 Year
  Sex: Male
  Weight: 104.31 kg

DRUGS (3)
  1. HYDROCODONE/ACETAMINOPHEN [Suspect]
     Indication: PROCEDURAL PAIN
     Dosage: 1 TAB, Q 6 HRS AS NEEDED
     Route: 048
     Dates: start: 20120713, end: 20120716
  2. LISINOPRIL [Concomitant]
     Indication: HYPERTENSION
     Dosage: UNK
     Route: 048
  3. SIMVASTATIN [Concomitant]
     Indication: BLOOD CHOLESTEROL INCREASED
     Dosage: UNK
     Route: 048

REACTIONS (7)
  - Panic attack [Recovered/Resolved]
  - Insomnia [Recovered/Resolved]
  - Feeling jittery [Recovered/Resolved]
  - Procedural haemorrhage [Recovered/Resolved]
  - Nervousness [Unknown]
  - Anxiety [Unknown]
  - Drug ineffective [Unknown]
